FAERS Safety Report 13840949 (Version 1)
Quarter: 2017Q3

REPORT INFORMATION
  Report Type: Spontaneous
  Country: CA (occurrence: CA)
  Receive Date: 20170807
  Receipt Date: 20170807
  Transmission Date: 20171127
  Serious: Yes (Death)
  Sender: FDA-Public Use
  Company Number: CA-PFIZER INC-2017103844

PATIENT
  Age: 58 Year
  Sex: Female
  Weight: 57 kg

DRUGS (4)
  1. TORISEL [Suspect]
     Active Substance: TEMSIROLIMUS
     Indication: METASTATIC MALIGNANT MELANOMA
  2. TORISEL [Suspect]
     Active Substance: TEMSIROLIMUS
     Indication: CHOROID MELANOMA
     Dosage: 25 MG, WEEKLY
     Route: 042
     Dates: start: 20150322
  3. TORISEL [Suspect]
     Active Substance: TEMSIROLIMUS
     Indication: MALIGNANT MELANOMA
     Dosage: 25 MG, WEEKLY
     Route: 042
     Dates: start: 20170323
  4. AVASTIN [Concomitant]
     Active Substance: BEVACIZUMAB
     Indication: CHOROID MELANOMA
     Dosage: UNK

REACTIONS (3)
  - Product preparation error [Unknown]
  - Product use in unapproved indication [Unknown]
  - Death [Fatal]
